FAERS Safety Report 6992436-X (Version None)
Quarter: 2010Q3

REPORT INFORMATION
  Report Type: 
  Country: None (occurrence: None)
  Receive Date: 20100917
  Receipt Date: 20100908
  Transmission Date: 20110219
  Serious: Yes (Hospitalization, Other)
  Sender: FDA-Public Use
  Company Number: PHEH2009US15176

PATIENT
  Sex: Male

DRUGS (5)
  1. EXJADE [Suspect]
     Indication: MYELODYSPLASTIC SYNDROME
     Dosage: 250 MG DAILY
     Route: 048
     Dates: start: 20080101
  2. EXJADE [Suspect]
     Indication: IRON OVERLOAD
     Dosage: 125 MG, QD
     Route: 048
  3. EXJADE [Suspect]
     Indication: LYMPHATIC DISORDER
  4. EXJADE [Suspect]
     Indication: BLOOD DISORDER
  5. REVLIMID [Concomitant]
     Dosage: UNK

REACTIONS (2)
  - PNEUMONIA [None]
  - SEPSIS [None]
